FAERS Safety Report 5709698-9 (Version None)
Quarter: 2008Q2

REPORT INFORMATION
  Report Type: 
  Country: None (occurrence: None)
  Receive Date: 20080418
  Receipt Date: 20080411
  Transmission Date: 20081010
  Serious: Yes (Hospitalization, Disabling)
  Sender: FDA-Public Use
  Company Number: PHBS2006JP07228

PATIENT
  Age: 72 Year
  Sex: Female
  Weight: 56 kg

DRUGS (3)
  1. ANAESTHETICS, LOCAL [Concomitant]
     Route: 065
     Dates: start: 20060518
  2. HYSRON [Concomitant]
     Indication: METASTASES TO BONE
     Dosage: 1.2 G/DAY
     Route: 065
     Dates: end: 20060515
  3. AREDIA [Suspect]
     Indication: METASTASES TO BONE
     Dosage: 30 MG/2WEEKS
     Route: 042
     Dates: start: 20020223, end: 20060426

REACTIONS (17)
  - BONE DENSITY DECREASED [None]
  - COMPUTERISED TOMOGRAM ABNORMAL [None]
  - DEBRIDEMENT [None]
  - FACE AND MOUTH X-RAY ABNORMAL [None]
  - GINGIVAL OPERATION [None]
  - GINGIVAL SWELLING [None]
  - GINGIVITIS [None]
  - IMPAIRED HEALING [None]
  - INFLAMMATION [None]
  - OSTEOMYELITIS [None]
  - OSTEONECROSIS [None]
  - PRIMARY SEQUESTRUM [None]
  - PURULENT DISCHARGE [None]
  - SEQUESTRECTOMY [None]
  - TOOTH LOSS [None]
  - TOOTH REPAIR [None]
  - WOUND TREATMENT [None]
